FAERS Safety Report 25969821 (Version 1)
Quarter: 2025Q4

REPORT INFORMATION
  Report Type: Spontaneous
  Country: EU (occurrence: EU)
  Receive Date: 20251028
  Receipt Date: 20251028
  Transmission Date: 20260118
  Serious: Yes (Death, Other)
  Sender: AMGEN
  Company Number: EU-AMGEN-ESPSP2025210873

PATIENT

DRUGS (1)
  1. ROMIPLOSTIM [Suspect]
     Active Substance: ROMIPLOSTIM
     Indication: Immune thrombocytopenia
     Dosage: UNK
     Route: 065

REACTIONS (6)
  - Death [Fatal]
  - Gastrointestinal toxicity [Unknown]
  - Therapy partial responder [Unknown]
  - Therapy non-responder [Unknown]
  - Hypertransaminasaemia [Recovered/Resolved]
  - Diarrhoea [Unknown]
